FAERS Safety Report 14307220 (Version 1)
Quarter: 2017Q4

REPORT INFORMATION
  Report Type: Spontaneous
  Country: US (occurrence: US)
  Receive Date: 20171219
  Receipt Date: 20171219
  Transmission Date: 20180321
  Serious: Yes (Disabling)
  Sender: FDA-Public Use
  Company Number: None

PATIENT
  Sex: Female
  Weight: 85.5 kg

DRUGS (7)
  1. VITAMIN D [Concomitant]
     Active Substance: CHOLECALCIFEROL
  2. FISH OIL [Concomitant]
     Active Substance: FISH OIL
  3. HUMIRA [Suspect]
     Active Substance: ADALIMUMAB
     Indication: RHEUMATOID ARTHRITIS
     Dosage: QUANTITY:1 INJECTION(S);OTHER FREQUENCY:EVERY OTHER WEEK;OTHER ROUTE:INJECTION IN LEG?
  4. PRIMROSE OIL [Concomitant]
  5. WALKING BOOT FOR LEFT FOOT [Concomitant]
  6. VITAMIN E [Concomitant]
     Active Substance: .ALPHA.-TOCOPHEROL
  7. CALCIUM [Concomitant]
     Active Substance: CALCIUM

REACTIONS (3)
  - Burning sensation [None]
  - Neuropathy peripheral [None]
  - Pain in extremity [None]

NARRATIVE: CASE EVENT DATE: 20170315
